FAERS Safety Report 5450504-8 (Version None)
Quarter: 2007Q3

REPORT INFORMATION
  Report Type: 
  Country: None (occurrence: None)
  Receive Date: 20070806
  Receipt Date: 20070619
  Transmission Date: 20080115
  Serious: Yes (Other)
  Sender: FDA-Public Use
  Company Number: 38416

PATIENT
  Sex: Female
  Weight: 97.5234 kg

DRUGS (1)
  1. MIDAZOLAM HCL [Suspect]
     Indication: SEDATION
     Dosage: 6MG IV
     Route: 042
     Dates: start: 20070611

REACTIONS (1)
  - DRUG INEFFECTIVE [None]
